FAERS Safety Report 14930447 (Version 2)
Quarter: 2018Q3

REPORT INFORMATION
  Report Type: Spontaneous
  Country: US (occurrence: US)
  Receive Date: 20180523
  Receipt Date: 20180713
  Transmission Date: 20181010
  Serious: Yes (Hospitalization, Other)
  Sender: FDA-Public Use
  Company Number: US-SAOL THERAPEUTICS-2018SAO00777

PATIENT
  Sex: Female
  Weight: 51.25 kg

DRUGS (5)
  1. MORPHINE [Suspect]
     Active Substance: MORPHINE
     Dosage: 1.2596 MG, \DAY
     Route: 037
  2. ALEVE [Concomitant]
     Active Substance: NAPROXEN SODIUM
     Dosage: 1 TABLETS, AS NEEDED
     Route: 048
  3. LISINOPRIL. [Concomitant]
     Active Substance: LISINOPRIL
     Dosage: 1 TABLETS, 1X/DAY
     Route: 048
  4. XANAX [Concomitant]
     Active Substance: ALPRAZOLAM
     Dosage: 0.25 MG, 1X/DAY
     Route: 048
  5. BACLOFEN. [Suspect]
     Active Substance: BACLOFEN
     Indication: MUSCLE SPASTICITY
     Dosage: 399.9 ?G, \DAY
     Route: 037

REACTIONS (5)
  - Weight decreased [Unknown]
  - Sepsis [Unknown]
  - Decubitus ulcer [Unknown]
  - Catheter site erosion [Unknown]
  - Cellulitis [Unknown]
